FAERS Safety Report 8863140 (Version 5)
Quarter: 2014Q1

REPORT INFORMATION
  Report Type: Report from Study
  Country: JP (occurrence: JP)
  Receive Date: 20121026
  Receipt Date: 20140221
  Transmission Date: 20141002
  Serious: Yes (Other)
  Sender: FDA-Public Use
  Company Number: JP-VERTEX PHARMACEUTICAL INC.-AE-2012-005915

PATIENT
  Age: 54 Year
  Sex: Female

DRUGS (12)
  1. VX-950 (TELAPREVIR) [Suspect]
     Indication: CHRONIC HEPATITIS C
     Dosage: 1500 MG, QD
     Route: 048
     Dates: start: 20120411, end: 20120516
  2. VX-950 (TELAPREVIR) [Suspect]
     Dosage: 750 MG, QD
     Route: 048
     Dates: start: 20120602
  3. PEGINTRON [Suspect]
     Indication: CHRONIC HEPATITIS C
     Dosage: 1.5 ?G/KG, QW
     Route: 058
     Dates: start: 20120411, end: 20120411
  4. PEGINTRON [Suspect]
     Dosage: 1.0 ?G/KG, QW
     Route: 058
     Dates: start: 20120418, end: 20120418
  5. PEGINTRON [Suspect]
     Dosage: 1.2 ?G/KG, QW
     Route: 058
     Dates: start: 20120425
  6. PEGINTRON [Suspect]
     Dosage: 1.3 ?G/KG, QW
     Route: 058
     Dates: start: 20120509, end: 20120516
  7. PEGINTRON [Suspect]
     Dosage: 80 ?G
     Route: 058
     Dates: start: 20120524
  8. REBETOL [Suspect]
     Indication: CHRONIC HEPATITIS C
     Dosage: 600 MG, QD
     Route: 048
     Dates: start: 20120411
  9. REBETOL [Suspect]
     Dosage: 400 MG, QD
     Route: 048
     Dates: start: 20120509, end: 20120516
  10. REBETOL [Suspect]
     Dosage: 200 MG, QD
     Route: 048
     Dates: start: 20120525
  11. MICARDIS [Concomitant]
     Dosage: 40 MG, QD
     Route: 048
  12. URSO [Concomitant]
     Dosage: 600 MG, QD
     Route: 048

REACTIONS (1)
  - Neutrophil count decreased [Recovered/Resolved]
